FAERS Safety Report 9908108 (Version 1)
Quarter: 2014Q1

REPORT INFORMATION
  Report Type: Spontaneous
  Country: US (occurrence: None)
  Receive Date: 20140212
  Receipt Date: 20140212
  Transmission Date: 20141002
  Serious: Yes (Disabling)
  Sender: FDA-Public Use
  Company Number: None

PATIENT
  Age: 58 Year
  Sex: Female
  Weight: 53.07 kg

DRUGS (2)
  1. ZOMETA [Suspect]
     Indication: PLASMA CELL MYELOMA
     Dosage: ONCE EVERY 6 MTH.
     Route: 042
     Dates: start: 200505, end: 201312
  2. ZOMETA [Suspect]
     Dosage: ONCE EVERY 6 MTH.
     Route: 042
     Dates: start: 200505, end: 201312

REACTIONS (2)
  - Osteomyelitis [None]
  - Osteonecrosis [None]
